FAERS Safety Report 9388177 (Version 2)
Quarter: 2013Q3

REPORT INFORMATION
  Report Type: Spontaneous
  Country: US (occurrence: US)
  Receive Date: 20130708
  Receipt Date: 20130821
  Transmission Date: 20140515
  Serious: Yes (Other)
  Sender: FDA-Public Use
  Company Number: US-BRISTOL-MYERS SQUIBB COMPANY-19073725

PATIENT
  Age: 68 Year
  Sex: Male

DRUGS (17)
  1. KOMBIGLYZE XR [Suspect]
     Indication: TYPE 2 DIABETES MELLITUS
     Dosage: CONTINUED BY ENDOCRINOLOGY FROM 2012
     Route: 048
     Dates: start: 2011
  2. LANTUS [Concomitant]
     Indication: TYPE 2 DIABETES MELLITUS
     Dosage: INJECTIONS
  3. SPIRIVA [Concomitant]
     Dosage: PUFF
  4. ADVAIR [Concomitant]
     Dosage: ADVAIR 250/50 PUFF
  5. VENTOLIN [Concomitant]
     Dosage: PUFF
  6. NITROMINT [Concomitant]
  7. FLUOXETINE [Concomitant]
  8. PLAMET [Concomitant]
     Route: 048
  9. AMLODIPINE [Concomitant]
     Route: 048
  10. ULORIC [Concomitant]
     Route: 048
  11. PROTONIX [Concomitant]
     Route: 048
  12. FERROUS SULFATE [Concomitant]
     Route: 048
  13. HYDROCHLOROTHIAZIDE [Concomitant]
     Route: 048
  14. LOSARTAN [Concomitant]
     Route: 048
  15. ISOSORBIDE MONONITRATE [Concomitant]
  16. ASA [Concomitant]
     Route: 048
  17. LAMICTAL [Concomitant]
     Route: 048

REACTIONS (1)
  - Pancreatic neuroendocrine tumour [Unknown]
